FAERS Safety Report 9580651 (Version 1)
Quarter: 2013Q4

REPORT INFORMATION
  Report Type: Spontaneous
  Country: US (occurrence: None)
  Receive Date: 20131001
  Receipt Date: 20131001
  Transmission Date: 20140711
  Serious: Yes (Other)
  Sender: FDA-Public Use
  Company Number: None

PATIENT
  Age: 50 Year
  Sex: Male
  Weight: 81.65 kg

DRUGS (1)
  1. MURINE EAR WAX REMOVAL DROPS [Suspect]
     Dates: start: 201308, end: 201308

REACTIONS (4)
  - Eye irritation [None]
  - Product label confusion [None]
  - Accidental exposure to product [None]
  - Eye swelling [None]
